FAERS Safety Report 9720245 (Version 1)
Quarter: 2013Q4

REPORT INFORMATION
  Report Type: Spontaneous
  Country: FR (occurrence: FR)
  Receive Date: 20131129
  Receipt Date: 20131129
  Transmission Date: 20140711
  Serious: Yes (Other)
  Sender: FDA-Public Use
  Company Number: FR-RANBAXY-2013RR-75681

PATIENT
  Age: 24 Year
  Sex: Female

DRUGS (2)
  1. IBUPROFEN [Suspect]
     Indication: PYREXIA
     Dosage: 2.4 G/DAY
     Route: 048
  2. IBUPROFEN [Suspect]
     Indication: CHEST PAIN

REACTIONS (6)
  - Lung abscess [Recovered/Resolved]
  - Bronchiectasis [Unknown]
  - Pleural effusion [Recovered/Resolved]
  - Acute respiratory failure [Recovered/Resolved]
  - Self-medication [Unknown]
  - Overdose [Unknown]
